FAERS Safety Report 8053430-3 (Version None)
Quarter: 2012Q1

REPORT INFORMATION
  Report Type: 
  Country: None (occurrence: None)
  Receive Date: 20120118
  Receipt Date: 20120113
  Transmission Date: 20120608
  Serious: Yes (Hospitalization)
  Sender: FDA-Public Use
  Company Number: US-GLAXOSMITHKLINE-A0961640A

PATIENT
  Age: 59 Year
  Sex: Male
  Weight: 93.3 kg

DRUGS (18)
  1. RITUXIMAB [Suspect]
     Indication: DIFFUSE LARGE B-CELL LYMPHOMA
  2. CYTARABINE [Suspect]
     Indication: DIFFUSE LARGE B-CELL LYMPHOMA
     Dates: start: 20100903, end: 20100906
  3. LISINOPRIL [Concomitant]
  4. COMPAZINE [Concomitant]
  5. FLUOXETINE [Concomitant]
  6. MELPHALAN [Suspect]
     Indication: DIFFUSE LARGE B-CELL LYMPHOMA
     Dates: start: 20100907, end: 20100907
  7. ZICAM [Concomitant]
  8. VANCOMYCIN [Concomitant]
  9. STUDY DRUG [Suspect]
     Indication: DIFFUSE LARGE B-CELL LYMPHOMA
     Dosage: 3.5MG EVERY 3 WEEKS
     Dates: start: 20100304, end: 20100720
  10. ETOPOSIDE [Suspect]
     Indication: DIFFUSE LARGE B-CELL LYMPHOMA
     Dates: start: 20100903, end: 20100903
  11. SIMVASTATIN [Concomitant]
  12. PRILOSEC [Concomitant]
  13. DIPHENHYDRAMINE HCL [Concomitant]
  14. ONDANSETRON [Concomitant]
  15. VALTREX [Concomitant]
  16. LORAZEPAM [Concomitant]
  17. CARMUSTINE [Suspect]
     Indication: DIFFUSE LARGE B-CELL LYMPHOMA
     Dates: start: 20100902, end: 20100902
  18. DEXAMETHASONE TAB [Concomitant]

REACTIONS (1)
  - VENOOCCLUSIVE LIVER DISEASE [None]
